FAERS Safety Report 16054114 (Version 4)
Quarter: 2019Q3

REPORT INFORMATION
  Report Type: Report from Study
  Country: CA (occurrence: CA)
  Receive Date: 20190308
  Receipt Date: 20190918
  Transmission Date: 20191004
  Serious: Yes (Other)
  Sender: FDA-Public Use
  Company Number: CA-ASCEND THERAPEUTICS-2063780

PATIENT
  Age: 60 Year
  Sex: Female

DRUGS (47)
  1. BREO ELLIPTA [Suspect]
     Active Substance: FLUTICASONE FUROATE\VILANTEROL TRIFENATATE
     Route: 045
  2. HYDROCORTISONE, KETOCONAZOLE (CREAM) [Suspect]
     Active Substance: HYDROCORTISONE\KETOCONAZOLE
     Route: 054
  3. METAMUCIL [Concomitant]
     Active Substance: PLANTAGO SEED
  4. HYDROCORTISONE ACETATE AND PRAMOXINE HYDROCHLORIDE [Suspect]
     Active Substance: HYDROCORTISONE ACETATE\PRAMOXINE HYDROCHLORIDE
  5. PANTOPRAZOLE (PANTOPRAZOLE) [Suspect]
     Active Substance: PANTOPRAZOLE SODIUM
  6. PNEUMOCOCCAL VACCINE (PNEUMOCOCCAL VACCINE) UNKNOWN [Concomitant]
     Active Substance: PNEUMOCOCCAL VACCINE POLYVALENT
  7. UMECLIDINIUM BROMIDE (INHALANT) [Suspect]
     Active Substance: UMECLIDINIUM BROMIDE
  8. FLUTICASONE. [Concomitant]
     Active Substance: FLUTICASONE
  9. INFLUENZA VACCINE (INFUENZA VACCINE) UNKNOWN [Concomitant]
     Active Substance: INFLUENZA VIRUS VACCINE
  10. ACTONEL [Suspect]
     Active Substance: RISEDRONATE SODIUM
  11. AIROMIR (SALBUTAMOL SULFATE) [Suspect]
     Active Substance: ALBUTEROL SULFATE
  12. COLACE [Suspect]
     Active Substance: DOCUSATE SODIUM
  13. FORMOTEROL FUMARATE (FORMOTEROL FUMARATE) [Suspect]
     Active Substance: FORMOTEROL FUMARATE
  14. ALBUTEROL (SALBUTAMOL) [Suspect]
     Active Substance: ALBUTEROL
  15. PROCTOCREAM HC [Suspect]
     Active Substance: HYDROCORTISONE
     Route: 054
  16. CHOLINE (CHOLINE) UNKNOWN [Concomitant]
  17. FLUCONAZOLE. [Suspect]
     Active Substance: FLUCONAZOLE
  18. RIVAROXABAN [Suspect]
     Active Substance: RIVAROXABAN
  19. MONTELUKAST [Suspect]
     Active Substance: MONTELUKAST SODIUM
  20. FORMOTEROL (FORMOTEROL FUMARATE) [Concomitant]
     Active Substance: FORMOTEROL FUMARATE
  21. MONTELUKAST [Suspect]
     Active Substance: MONTELUKAST SODIUM
  22. OXYCODONE [Suspect]
     Active Substance: OXYCODONE
  23. NICOTINAMIDE (NICOTINAMIDE) UNKNOWN [Concomitant]
  24. FLUTICASONE PROPIONATE. [Suspect]
     Active Substance: FLUTICASONE PROPIONATE
  25. OXYCODONE HYDROCHLORIDE. [Suspect]
     Active Substance: OXYCODONE HYDROCHLORIDE
  26. PULMICORT TURBUHALER [Concomitant]
     Active Substance: BUDESONIDE
  27. VITAMINS (VITAMINS NOS) [Concomitant]
     Active Substance: VITAMINS
  28. ALBUTEROL (+) IPRATROPIUM BROMIDE (SALBUTAMOL, IPRATROPIUM) [Suspect]
     Active Substance: ALBUTEROL\IPRATROPIUM BROMIDE
  29. RIVAROXABAN (RIVAROXABAN) [Suspect]
     Active Substance: RIVAROXABAN
  30. XARELTO [Suspect]
     Active Substance: RIVAROXABAN
  31. RIBOFLAVIN (RIBOFLAVIN) UNKNOWN [Concomitant]
  32. THIAMINE HYDROCHLORIDE. [Concomitant]
     Active Substance: THIAMINE HYDROCHLORIDE
  33. MONTELUKAST SODIUM. [Suspect]
     Active Substance: MONTELUKAST SODIUM
  34. NYSTATIN. [Suspect]
     Active Substance: NYSTATIN
     Route: 048
  35. OXYNEO (OXYCODONE HYDROCHLORIDE) [Suspect]
     Active Substance: OXYCODONE HYDROCHLORIDE
  36. CALCIUM D PANTOTHENATE (CALCIUM PANTOTHENATE) UNKNOWN [Concomitant]
     Active Substance: CALCIUM PANTOTHENATE
  37. VITAMIN B12 (VITAMIN B12 NOS) UNKNOWN [Concomitant]
  38. ESTROGEL [Suspect]
     Active Substance: ESTRADIOL
     Indication: PRODUCT USED FOR UNKNOWN INDICATION
  39. FORADIL [Suspect]
     Active Substance: FORMOTEROL FUMARATE
  40. CLARITHROMYCIN. [Suspect]
     Active Substance: CLARITHROMYCIN
  41. AMOXICILLIN. [Suspect]
     Active Substance: AMOXICILLIN
  42. POLYMOX [Suspect]
     Active Substance: AMOXICILLIN
  43. PREDNISONE. [Suspect]
     Active Substance: PREDNISONE
  44. VENTOLIN [Suspect]
     Active Substance: ALBUTEROL SULFATE
  45. AMOXICILLIN, CLARITHRONYCIN, ESMOEPRAZOLE MAGNESIUM (AMOXICILLIN TRIHY [Suspect]
     Active Substance: AMOXICILLIN\CLARITHROMYCIN\ESOMEPRAZOLE
  46. ATOCK (FORMOTEROL FUMURATE) [Suspect]
     Active Substance: FORMOTEROL FUMARATE
  47. PYRIDOXINE HYDROCHLORIDE. [Concomitant]
     Active Substance: PYRIDOXINE HYDROCHLORIDE

REACTIONS (36)
  - Candida infection [Unknown]
  - Cough [Unknown]
  - Disease recurrence [Unknown]
  - Dyspnoea [Unknown]
  - Gastrooesophageal reflux disease [Unknown]
  - Iron deficiency anaemia [Unknown]
  - Dyspnoea exertional [Unknown]
  - Embolism venous [Unknown]
  - Weight increased [Unknown]
  - Chronic sinusitis [Unknown]
  - Hysterectomy [Unknown]
  - Pulmonary embolism [Unknown]
  - Abdominal discomfort [Unknown]
  - Diastolic dysfunction [Unknown]
  - Diverticulum [Unknown]
  - Sinusitis [Unknown]
  - Female genital tract fistula [Unknown]
  - Fungal infection [Unknown]
  - Osteoporosis [Unknown]
  - Respiratory symptom [Unknown]
  - Tricuspid valve incompetence [Unknown]
  - Deep vein thrombosis [Unknown]
  - Oedema peripheral [Unknown]
  - Eczema [Unknown]
  - Hiatus hernia [Unknown]
  - Obstructive airways disorder [Unknown]
  - Salpingo-oophorectomy unilateral [Unknown]
  - Wheezing [Unknown]
  - Emphysema [Unknown]
  - Lower respiratory tract infection [Unknown]
  - Sleep apnoea syndrome [Unknown]
  - Asthma [Unknown]
  - Chest discomfort [Unknown]
  - Nasal polyps [Unknown]
  - Osteoarthritis [Unknown]
  - Sputum increased [Unknown]
